FAERS Safety Report 7887909-1 (Version None)
Quarter: 2011Q4

REPORT INFORMATION
  Report Type: 
  Country: None (occurrence: None)
  Receive Date: 20111103
  Receipt Date: 20111101
  Transmission Date: 20120403
  Serious: Yes (Other)
  Sender: FDA-Public Use
  Company Number: US-PERRIGO-11US007600

PATIENT
  Sex: Female
  Weight: 57.596 kg

DRUGS (1)
  1. RID MOUSSE [Suspect]
     Indication: PROPHYLAXIS
     Dosage: 1 APPLICATION, ONCE
     Route: 061
     Dates: start: 20110823, end: 20110823

REACTIONS (15)
  - CORNEAL ABRASION [None]
  - EYE PAIN [None]
  - PURULENT DISCHARGE [None]
  - EYE IRRITATION [None]
  - ACCIDENTAL EXPOSURE [None]
  - RETINAL INJURY [None]
  - EYE DISORDER [None]
  - ERYTHEMA OF EYELID [None]
  - OFF LABEL USE [None]
  - PHOTOPHOBIA [None]
  - CONJUNCTIVITIS [None]
  - OCULAR HYPERAEMIA [None]
  - HEADACHE [None]
  - VISUAL IMPAIRMENT [None]
  - DYSPNOEA [None]
